FAERS Safety Report 8344537 (Version 4)
Quarter: 2012Q4

REPORT INFORMATION
  Report Type: 
  Country: AU (occurrence: AU)
  Receive Date: 20120119
  Receipt Date: 20120904
  Transmission Date: 20130627
  Serious: Yes (Death)
  Sender: FDA-Public Use
  Company Number: AU-ROCHE-1031277

PATIENT

DRUGS (1)
  1. TENECTEPLASE [Suspect]
     Indication: ISCHAEMIC STROKE
     Route: 042

REACTIONS (3)
  - Pneumonia [Fatal]
  - Myocardial infarction [Fatal]
  - Renal failure acute [Fatal]
